FAERS Safety Report 4420835-9 (Version None)
Quarter: 2004Q3

REPORT INFORMATION
  Report Type: 
  Country: None (occurrence: None)
  Receive Date: 20040809
  Receipt Date: 20040726
  Transmission Date: 20050211
  Serious: Yes (Other)
  Sender: FDA-Public Use
  Company Number: US-JNJFOC-20040306583

PATIENT
  Sex: Male

DRUGS (12)
  1. DURAGESIC [Suspect]
     Route: 062
  2. DURAGESIC [Suspect]
     Route: 062
  3. DURAGESIC [Suspect]
     Route: 062
  4. DURAGESIC [Suspect]
     Route: 062
  5. DURAGESIC [Suspect]
     Route: 062
  6. PERCOCET [Suspect]
     Route: 049
  7. PERCOCET [Suspect]
     Indication: PAIN
     Route: 049
  8. KLONOPIN [Suspect]
     Indication: DRUG USE FOR UNKNOWN INDICATION
  9. PAXIL [Concomitant]
  10. ALBUTEROL [Concomitant]
  11. FLUTICASONE PROPIONATE [Concomitant]
  12. AZITHROMYCIN [Concomitant]

REACTIONS (14)
  - CONFUSIONAL STATE [None]
  - DIZZINESS [None]
  - FATIGUE [None]
  - HEART RATE INCREASED [None]
  - LETHARGY [None]
  - LOSS OF CONSCIOUSNESS [None]
  - MEDICATION ERROR [None]
  - OXYGEN SATURATION DECREASED [None]
  - PHARMACEUTICAL PRODUCT COMPLAINT [None]
  - SINUS TACHYCARDIA [None]
  - SKIN DISCOLOURATION [None]
  - SOMNOLENCE [None]
  - TOXICOLOGIC TEST ABNORMAL [None]
  - WHEEZING [None]
